FAERS Safety Report 24548069 (Version 1)
Quarter: 2024Q4

REPORT INFORMATION
  Report Type: Spontaneous
  Country: DE (occurrence: DE)
  Receive Date: 20241025
  Receipt Date: 20241025
  Transmission Date: 20250114
  Serious: No
  Sender: ALKEM
  Company Number: DE-ALKEM LABORATORIES LIMITED-DE-ALKEM-2023-11255

PATIENT
  Age: 30 Year
  Sex: Male

DRUGS (5)
  1. CLOBAZAM [Suspect]
     Active Substance: CLOBAZAM
     Indication: Lennox-Gastaut syndrome
     Dosage: UNK
     Route: 065
  2. CENOBAMATE [Suspect]
     Active Substance: CENOBAMATE
     Indication: Lennox-Gastaut syndrome
     Dosage: UNK
     Route: 065
  3. FELBAMATE [Suspect]
     Active Substance: FELBAMATE
     Indication: Lennox-Gastaut syndrome
     Dosage: UNK
     Route: 065
  4. FELBAMATE [Suspect]
     Active Substance: FELBAMATE
     Dosage: UNK (DOSE REDUCED BY ONE-THIRD)
     Route: 065
  5. VALPROIC ACID [Suspect]
     Active Substance: VALPROIC ACID
     Indication: Lennox-Gastaut syndrome
     Dosage: UNK
     Route: 065

REACTIONS (2)
  - Gait disturbance [Unknown]
  - Drug ineffective [Unknown]
